FAERS Safety Report 17561286 (Version 1)
Quarter: 2020Q1

REPORT INFORMATION
  Report Type: Spontaneous
  Country: US (occurrence: US)
  Receive Date: 20200312
  Receipt Date: 20200312
  Transmission Date: 20200409
  Serious: Yes (Hospitalization)
  Sender: FDA-Public Use
  Company Number: None

PATIENT
  Age: 81 Year
  Sex: Female

DRUGS (16)
  1. PRESERVISION CAP AREDS 2 [Concomitant]
  2. ASPIRIN. [Concomitant]
     Active Substance: ASPIRIN
  3. LORATADINE. [Concomitant]
     Active Substance: LORATADINE
  4. VITAMIN D3 [Concomitant]
     Active Substance: CHOLECALCIFEROL
  5. ALLOPURINOL. [Concomitant]
     Active Substance: ALLOPURINOL
  6. SLIDENAFII 20MG [Suspect]
     Active Substance: SILDENAFIL
     Indication: PULMONARY ARTERIAL HYPERTENSION
     Route: 048
     Dates: start: 20190204
  7. CALCIUM [Concomitant]
     Active Substance: CALCIUM
  8. MONTELUKAST [Concomitant]
     Active Substance: MONTELUKAST SODIUM
  9. MYRBETRIQ [Concomitant]
     Active Substance: MIRABEGRON
  10. RANITIDINE. [Concomitant]
     Active Substance: RANITIDINE
  11. FLUTICASONE. [Concomitant]
     Active Substance: FLUTICASONE
  12. GABAPENTIN. [Concomitant]
     Active Substance: GABAPENTIN
  13. OMEPRAZOLE. [Concomitant]
     Active Substance: OMEPRAZOLE
  14. PRAVASTATIN. [Concomitant]
     Active Substance: PRAVASTATIN
  15. AMOXICILLIN. [Concomitant]
     Active Substance: AMOXICILLIN
  16. DULOXETINE. [Concomitant]
     Active Substance: DULOXETINE

REACTIONS (3)
  - Concussion [None]
  - Fall [None]
  - Swelling [None]
